FAERS Safety Report 20405222 (Version 1)
Quarter: 2022Q1

REPORT INFORMATION
  Report Type: Spontaneous
  Country: US (occurrence: US)
  Receive Date: 20220131
  Receipt Date: 20220131
  Transmission Date: 20220423
  Serious: No
  Sender: FDA-Public Use
  Company Number: US-PFIZER INC-2016327096

PATIENT
  Age: 64 Year
  Sex: Female
  Weight: 122.02 kg

DRUGS (12)
  1. LYRICA [Suspect]
     Active Substance: PREGABALIN
     Indication: Nerve injury
     Dosage: 150 MG, 1X/DAY IN THE EARLY EVENING
     Route: 048
  2. LYRICA [Suspect]
     Active Substance: PREGABALIN
     Indication: Polyneuropathy
  3. FOSINOPRIL [Concomitant]
     Active Substance: FOSINOPRIL
     Indication: Blood pressure abnormal
     Dosage: 10 MG, UNK
     Route: 048
  4. FOSINOPRIL [Concomitant]
     Active Substance: FOSINOPRIL
     Dosage: 20 MG, 1X/DAY
     Route: 048
  5. HYDROCHLOROTHIAZIDE [Concomitant]
     Active Substance: HYDROCHLOROTHIAZIDE
     Indication: Fluid retention
     Dosage: 25 MG, 1X/DAY
     Route: 048
  6. SIMVASTATIN [Concomitant]
     Active Substance: SIMVASTATIN
     Indication: Blood cholesterol abnormal
     Dosage: 5 MG, UNK
     Route: 048
  7. SIMVASTATIN [Concomitant]
     Active Substance: SIMVASTATIN
     Dosage: 10 MG, 1X/DAY
     Route: 048
  8. NORTRIPTYLINE HYDROCHLORIDE [Concomitant]
     Active Substance: NORTRIPTYLINE HYDROCHLORIDE
     Indication: Nervous system disorder
     Dosage: 25 MG, 1X/DAY
     Route: 048
  9. DETROL LA [Concomitant]
     Active Substance: TOLTERODINE TARTRATE
     Indication: Incontinence
     Dosage: 4 MG, 1X/DAY
     Route: 048
  10. LATANOPROST [Concomitant]
     Active Substance: LATANOPROST
     Indication: Prophylaxis
     Dosage: 5 PERCENT 1 DROP IN EACH EYE AT BEDTIME
  11. ASPIRIN [Concomitant]
     Active Substance: ASPIRIN
     Indication: Chest pain
     Dosage: 325 MG, 1X/DAY
     Route: 048
     Dates: start: 1998
  12. ALBUTEROL [Concomitant]
     Active Substance: ALBUTEROL
     Indication: Asthma
     Dosage: 90 MCG 2 SPRAYS IN THE MORNING AND 2 SPRAYS IN THE EVENING INHALER
     Dates: start: 201511

REACTIONS (4)
  - Poor quality product administered [Unknown]
  - Product odour abnormal [Unknown]
  - Product colour issue [Unknown]
  - Chronic obstructive pulmonary disease [Unknown]

NARRATIVE: CASE EVENT DATE: 20160622
